FAERS Safety Report 23237840 (Version 1)
Quarter: 2023Q4

REPORT INFORMATION
  Report Type: Spontaneous
  Country: BE (occurrence: BE)
  Receive Date: 20231128
  Receipt Date: 20231128
  Transmission Date: 20240110
  Serious: Yes (Other)
  Sender: FDA-Public Use
  Company Number: BE-CELLTRION INC.-2023BE022653

PATIENT

DRUGS (3)
  1. INFLIXIMAB [Suspect]
     Active Substance: INFLIXIMAB
     Indication: Crohn^s disease
     Dosage: UNK
  2. FUCIDIN (FUSIDIC ACID) [Concomitant]
     Active Substance: FUSIDIC ACID
     Indication: Crohn^s disease
  3. AZATHIOPRINE [Concomitant]
     Active Substance: AZATHIOPRINE
     Indication: Crohn^s disease

REACTIONS (2)
  - Breast cancer [Unknown]
  - Campylobacter sepsis [Unknown]
